FAERS Safety Report 13942253 (Version 1)
Quarter: 2017Q3

REPORT INFORMATION
  Report Type: Spontaneous
  Country: CA (occurrence: US)
  Receive Date: 20170907
  Receipt Date: 20170907
  Transmission Date: 20171127
  Serious: Yes (Hospitalization, Other)
  Sender: FDA-Public Use
  Company Number: CA-AMNEAL PHARMACEUTICALS-2017AMN00829

PATIENT
  Age: 39 Year
  Sex: Male

DRUGS (1)
  1. PHENYTOIN SODIUM. [Suspect]
     Active Substance: PHENYTOIN SODIUM
     Indication: EPILEPSY
     Dosage: UNK
     Route: 065

REACTIONS (11)
  - Asthenia [Recovered/Resolved]
  - Ataxia [Recovered/Resolved]
  - Endocrine disorder [Unknown]
  - Stupor [Recovered/Resolved]
  - Bradycardia [Recovered/Resolved]
  - Hyperkalaemia [Recovered/Resolved]
  - Hypogonadism male [Unknown]
  - Confusional state [Recovered/Resolved]
  - Adrenal insufficiency [Unknown]
  - Hypothyroidism [Unknown]
  - Hypothermia [Recovered/Resolved]
